FAERS Safety Report 8482959-9 (Version None)
Quarter: 2012Q3

REPORT INFORMATION
  Report Type: 
  Country: None (occurrence: None)
  Receive Date: 20120702
  Receipt Date: 20120626
  Transmission Date: 20120928
  Serious: Yes (Other)
  Sender: FDA-Public Use
  Company Number: US-PFIZER INC-2012154163

PATIENT
  Age: 91 Year
  Sex: Female

DRUGS (3)
  1. LYRICA [Suspect]
     Indication: NEURALGIA
     Dosage: UNK
     Dates: start: 20060101, end: 20120601
  2. LIPITOR [Suspect]
     Dosage: UNK
     Dates: end: 20120301
  3. LIPITOR [Suspect]
     Dosage: UNK
     Dates: start: 20120301, end: 20120401

REACTIONS (18)
  - VISION BLURRED [None]
  - FLUID RETENTION [None]
  - OEDEMA PERIPHERAL [None]
  - GAIT DISTURBANCE [None]
  - RIB FRACTURE [None]
  - JOINT SWELLING [None]
  - CARDIAC FAILURE CONGESTIVE [None]
  - DISTURBANCE IN ATTENTION [None]
  - DRY MOUTH [None]
  - SWELLING FACE [None]
  - OXYGEN SATURATION ABNORMAL [None]
  - DRUG ADMINISTRATION ERROR [None]
  - LIP DISORDER [None]
  - DIAPHRAGMATIC DISORDER [None]
  - FOOT DEFORMITY [None]
  - FALL [None]
  - UPPER LIMB FRACTURE [None]
  - WEIGHT INCREASED [None]
